FAERS Safety Report 17571772 (Version 3)
Quarter: 2020Q2

REPORT INFORMATION
  Report Type: Spontaneous
  Country: JP (occurrence: JP)
  Receive Date: 20200323
  Receipt Date: 20200617
  Transmission Date: 20200713
  Serious: Yes (Hospitalization, Other)
  Sender: FDA-Public Use
  Company Number: JP-AMGEN-JPNSP2020046353

PATIENT
  Age: 49 Year
  Sex: Male
  Weight: 53.1 kg

DRUGS (8)
  1. PARSABIV [Suspect]
     Active Substance: ETELCALCETIDE HYDROCHLORIDE
     Dosage: 7.5 MG, Q56H
     Route: 010
     Dates: start: 20190330, end: 20190718
  2. PARSABIV [Suspect]
     Active Substance: ETELCALCETIDE HYDROCHLORIDE
     Dosage: 5 MG, Q56H
     Route: 010
     Dates: start: 20190720, end: 20190808
  3. WARKMIN [Concomitant]
     Active Substance: ALFACALCIDOL
     Dosage: 0.5 MUG
     Route: 065
     Dates: start: 20180118
  4. PARSABIV [Suspect]
     Active Substance: ETELCALCETIDE HYDROCHLORIDE
     Indication: HYPERPARATHYROIDISM SECONDARY
     Dosage: 5 MG, Q56H
     Route: 010
     Dates: start: 20190226, end: 20190328
  5. WARKMIN [Concomitant]
     Active Substance: ALFACALCIDOL
     Dosage: 0.5 MICROGRAM
     Route: 065
     Dates: start: 20180118
  6. PARSABIV [Suspect]
     Active Substance: ETELCALCETIDE HYDROCHLORIDE
     Dosage: 2.5 MG, Q56H
     Route: 010
     Dates: start: 20190810
  7. KIKLIN [Concomitant]
     Active Substance: BIXALOMER
     Dosage: 3000 MG
     Route: 048
  8. CALTAN [Concomitant]
     Active Substance: CALCIUM CARBONATE
     Dosage: 3000 MG
     Route: 048

REACTIONS (1)
  - Myocardial ischaemia [Recovered/Resolved]

NARRATIVE: CASE EVENT DATE: 20190812
